FAERS Safety Report 7985247-X (Version None)
Quarter: 2011Q4

REPORT INFORMATION
  Report Type: 
  Country: None (occurrence: None)
  Receive Date: 20111216
  Receipt Date: 20100906
  Transmission Date: 20120403
  Serious: Yes (Death)
  Sender: FDA-Public Use
  Company Number: PHHY2010NL59091

PATIENT
  Age: 78 Year
  Sex: Male

DRUGS (2)
  1. TOBI [Suspect]
     Indication: BRONCHIECTASIS
  2. TOBI [Suspect]
     Indication: LUNG NEOPLASM MALIGNANT

REACTIONS (1)
  - LUNG CANCER METASTATIC [None]
